FAERS Safety Report 12599618 (Version 2)
Quarter: 2016Q3

REPORT INFORMATION
  Report Type: Report from Study
  Country: US (occurrence: US)
  Receive Date: 20160727
  Receipt Date: 20160729
  Transmission Date: 20161109
  Serious: No
  Sender: FDA-Public Use
  Company Number: US-BEH-2016071480

PATIENT
  Age: 43 Year
  Sex: Female

DRUGS (1)
  1. ZEMAIRA [Suspect]
     Active Substance: .ALPHA.1-PROTEINASE INHIBITOR HUMAN
     Indication: ALPHA-1 ANTI-TRYPSIN DEFICIENCY
     Route: 042

REACTIONS (4)
  - Urticaria [Recovered/Resolved]
  - Pruritus [Recovered/Resolved]
  - Eye swelling [Recovered/Resolved]
  - Ear swelling [Recovered/Resolved]
